FAERS Safety Report 24000425 (Version 2)
Quarter: 2024Q3

REPORT INFORMATION
  Report Type: Spontaneous
  Country: JP (occurrence: JP)
  Receive Date: 20240621
  Receipt Date: 20240701
  Transmission Date: 20241016
  Serious: Yes (Other)
  Sender: FRESENIUS KABI
  Company Number: JP-FreseniusKabi-FK202409657

PATIENT
  Age: 37 Year
  Sex: Male
  Weight: 66 kg

DRUGS (7)
  1. PROPOFOL [Suspect]
     Active Substance: PROPOFOL
     Indication: General anaesthesia
     Route: 042
  2. FENTANYL [Suspect]
     Active Substance: FENTANYL\FENTANYL CITRATE
     Indication: General anaesthesia
  3. SEVOFLURANE [Suspect]
     Active Substance: SEVOFLURANE
     Indication: Maintenance of anaesthesia
     Dosage: SEVOFLURANE 2 TO 3% AT AN END-TIDAL SEVOFLURANE CONCENTRATION(ETSEVO) OF 1.4 TO 2.4% ALONG WITH OXYG
  4. FLURBIPROFEN AXETIL [Suspect]
     Active Substance: FLURBIPROFEN AXETIL
     Indication: Analgesic therapy
     Dosage: 50 MG FOR 15 MINUTES
  5. SUGAMMADEX [Suspect]
     Active Substance: SUGAMMADEX
     Indication: Hypotonia
  6. ROCURONIUM BROMIDE [Concomitant]
     Active Substance: ROCURONIUM BROMIDE
     Indication: Hypotonia
  7. FLOMOXEF SODIUM [Concomitant]
     Active Substance: FLOMOXEF SODIUM

REACTIONS (3)
  - Generalised tonic-clonic seizure [Recovered/Resolved]
  - Loss of consciousness [Recovered/Resolved]
  - Hypopnoea [Recovered/Resolved]
